FAERS Safety Report 20507574 (Version 1)
Quarter: 2022Q1

REPORT INFORMATION
  Report Type: Spontaneous
  Country: US (occurrence: US)
  Receive Date: 20220223
  Receipt Date: 20220223
  Transmission Date: 20220423
  Serious: No
  Sender: FDA-Public Use
  Company Number: US-PFIZER INC-202101656343

PATIENT
  Age: 53 Year
  Sex: Female
  Weight: 92.971 kg

DRUGS (5)
  1. IBRANCE [Suspect]
     Active Substance: PALBOCICLIB
     Indication: Breast cancer female
     Dosage: 125 MG, UNK
  2. IBRANCE [Suspect]
     Active Substance: PALBOCICLIB
     Dosage: 100 MG, CYCLIC ( DAILY X 21 DAYS THEN 7DAYS OFF)
     Route: 048
     Dates: start: 201811
  3. ZOLADEX [Concomitant]
     Active Substance: GOSERELIN ACETATE
     Dosage: UNK, 10.8 MG
  4. ZOMETA [Concomitant]
     Active Substance: ZOLEDRONIC ACID
     Dosage: UNK, 4 MG/100ML PGGYBK BTL
  5. LETROZOLE [Concomitant]
     Active Substance: LETROZOLE
     Dosage: UNK, 100 % POWDER

REACTIONS (2)
  - Red blood cell count abnormal [Unknown]
  - White blood cell disorder [Unknown]
